FAERS Safety Report 6816131-2 (Version None)
Quarter: 2010Q3

REPORT INFORMATION
  Report Type: 
  Country: None (occurrence: None)
  Receive Date: 20100702
  Receipt Date: 20100702
  Transmission Date: 20110219
  Serious: No
  Sender: FDA-Public Use
  Company Number: None

PATIENT
  Age: 9 Year
  Sex: Male
  Weight: 27.2158 kg

DRUGS (1)
  1. ROBITUSSIN CHILDRENS COUGH COLD LONG ACTING WYETH CONSUMER HEALTHCARE [Suspect]
     Indication: COUGH
     Dosage: NONE

REACTIONS (1)
  - PRODUCT ODOUR ABNORMAL [None]
